FAERS Safety Report 25583561 (Version 1)
Quarter: 2025Q3

REPORT INFORMATION
  Report Type: Spontaneous
  Country: EU (occurrence: EU)
  Receive Date: 20250721
  Receipt Date: 20250721
  Transmission Date: 20251020
  Serious: Yes (Hospitalization, Other)
  Sender: ENDO
  Company Number: EU-ENDO USA, INC.-2025-001609

PATIENT
  Age: 69 Year
  Sex: Male

DRUGS (11)
  1. ARGATROBAN [Suspect]
     Active Substance: ARGATROBAN
     Indication: Anticoagulant therapy
     Dosage: 20 MILLIGRAM, SINGLE  (0.28 MG/KG) (SIXTEEN MINUTES AFTER THE INC)
     Route: 040
  2. ARGATROBAN [Suspect]
     Active Substance: ARGATROBAN
     Route: 042
  3. ARGATROBAN [Suspect]
     Active Substance: ARGATROBAN
     Route: 065
  4. ARGATROBAN [Suspect]
     Active Substance: ARGATROBAN
     Route: 065
  5. ARGATROBAN [Suspect]
     Active Substance: ARGATROBAN
     Route: 042
  6. ARGATROBAN [Suspect]
     Active Substance: ARGATROBAN
     Route: 065
  7. ARGATROBAN [Suspect]
     Active Substance: ARGATROBAN
     Route: 065
  8. APIXABAN [Concomitant]
     Active Substance: APIXABAN
     Indication: Atrial fibrillation
     Route: 065
  9. HEPARIN [Concomitant]
     Active Substance: HEPARIN SODIUM
     Indication: Anticoagulant therapy
     Route: 042
  10. DOBUTAMINE [Concomitant]
     Active Substance: DOBUTAMINE HYDROCHLORIDE
     Indication: Cardiac disorder
     Route: 042
  11. FUROSEMIDE [Concomitant]
     Active Substance: FUROSEMIDE
     Indication: Diuretic therapy
     Route: 042

REACTIONS (2)
  - Bleeding time prolonged [Recovered/Resolved]
  - Medical device site thrombosis [Recovered/Resolved]
